FAERS Safety Report 11146289 (Version 1)
Quarter: 2015Q2

REPORT INFORMATION
  Report Type: Spontaneous
  Country: US (occurrence: US)
  Receive Date: 20150528
  Receipt Date: 20150528
  Transmission Date: 20150821
  Serious: Yes (Hospitalization)
  Sender: FDA-Public Use
  Company Number: US-TEVA-566293USA

PATIENT
  Age: 13 Year
  Sex: Male

DRUGS (1)
  1. AMOXICILLIN. [Suspect]
     Active Substance: AMOXICILLIN
     Indication: PHARYNGITIS STREPTOCOCCAL
     Dosage: A COURSE
     Route: 065

REACTIONS (4)
  - Henoch-Schonlein purpura [Recovering/Resolving]
  - Clostridium difficile colitis [Recovering/Resolving]
  - Acute kidney injury [Recovered/Resolved]
  - Drug hypersensitivity [Unknown]
